FAERS Safety Report 7342914-9 (Version None)
Quarter: 2011Q1

REPORT INFORMATION
  Report Type: 
  Country: None (occurrence: None)
  Receive Date: 20110310
  Receipt Date: 20110223
  Transmission Date: 20110831
  Serious: Yes (Hospitalization)
  Sender: FDA-Public Use
  Company Number: PHHY2011US12119

PATIENT
  Sex: Male

DRUGS (7)
  1. TERAZOSIN [Concomitant]
     Dosage: 5 MG, UNK
  2. ISOSORBIDE DINITRATE [Concomitant]
     Dosage: UNK
  3. METOPROLOL [Concomitant]
     Dosage: 50 MG, UNK
  4. EXFORGE [Suspect]
     Dosage: 320/5 MG
  5. ALLOPURINOL [Suspect]
     Dosage: 300 MG, UNK
  6. ASPIRIN [Concomitant]
  7. DIOVAN [Concomitant]

REACTIONS (5)
  - BALANCE DISORDER [None]
  - JOINT SWELLING [None]
  - FALL [None]
  - DIZZINESS [None]
  - UPPER LIMB FRACTURE [None]
